FAERS Safety Report 8294647-2 (Version None)
Quarter: 2012Q2

REPORT INFORMATION
  Report Type: 
  Country: None (occurrence: None)
  Receive Date: 20120418
  Receipt Date: 20110825
  Transmission Date: 20120825
  Serious: No
  Sender: FDA-Public Use
  Company Number: US-ABBOTT-11P-163-0849795-00

PATIENT
  Sex: Male

DRUGS (3)
  1. PROGRAF [Suspect]
     Indication: IMMUNOSUPPRESSION
     Dates: start: 20090801, end: 20101001
  2. ZEMPLAR [Suspect]
     Indication: BONE DISORDER
     Dates: start: 20090801
  3. RAPAMUNE [Concomitant]
     Indication: IMMUNOSUPPRESSION
     Dates: start: 20101001

REACTIONS (12)
  - NAUSEA [None]
  - CONSTIPATION [None]
  - TREMOR [None]
  - POLLAKIURIA [None]
  - FEELING JITTERY [None]
  - CONFUSIONAL STATE [None]
  - DIARRHOEA [None]
  - FATIGUE [None]
  - MUSCLE SPASMS [None]
  - VOMITING [None]
  - THIRST [None]
  - MUSCLE TWITCHING [None]
